FAERS Safety Report 6976273-8 (Version None)
Quarter: 2010Q3

REPORT INFORMATION
  Report Type: 
  Country: None (occurrence: None)
  Receive Date: 20100910
  Receipt Date: 20090421
  Transmission Date: 20110219
  Serious: No
  Sender: FDA-Public Use
  Company Number: US-WYE-H09056009

PATIENT
  Sex: Female
  Weight: 59.02 kg

DRUGS (1)
  1. PRISTIQ [Suspect]
     Route: 048
     Dates: start: 20090301

REACTIONS (3)
  - ABDOMINAL DISCOMFORT [None]
  - ABDOMINAL DISTENSION [None]
  - CONSTIPATION [None]
